FAERS Safety Report 8336000-9 (Version None)
Quarter: 2012Q2

REPORT INFORMATION
  Report Type: 
  Country: None (occurrence: None)
  Receive Date: 20120501
  Receipt Date: 20120501
  Transmission Date: 20120825
  Serious: Yes (Hospitalization)
  Sender: FDA-Public Use
  Company Number: None

PATIENT
  Sex: Female
  Weight: 77.27 kg

DRUGS (3)
  1. VINCRISTINE SULFATE [Suspect]
     Dosage: 8 MG
  2. CYTARABINE [Suspect]
     Dosage: 2080 MG
  3. CYCLOPHOSPHAMIDE [Suspect]
     Dosage: 34800 MG

REACTIONS (1)
  - PNEUMONIA [None]
